FAERS Safety Report 10896497 (Version 2)
Quarter: 2015Q2

REPORT INFORMATION
  Report Type: Spontaneous
  Country: TR (occurrence: None)
  Receive Date: 20150302
  Receipt Date: 20150416
  Transmission Date: 20150821
  Serious: Yes (Life-Threatening)
  Sender: FDA-Public Use
  Company Number: TR-20150002

PATIENT
  Age: 62 Year
  Sex: Female

DRUGS (1)
  1. DOTAREM [Suspect]
     Active Substance: GADOTERATE MEGLUMINE
     Indication: NUCLEAR MAGNETIC RESONANCE IMAGING
     Dosage: NOT OTHERWISE SPECIFIED
     Route: 042

REACTIONS (4)
  - Vomiting [None]
  - Hypertension [None]
  - Respiratory distress [None]
  - Nausea [None]

NARRATIVE: CASE EVENT DATE: 20150211
